FAERS Safety Report 10736171 (Version 1)
Quarter: 2015Q1

REPORT INFORMATION
  Report Type: Spontaneous
  Country: FR (occurrence: None)
  Receive Date: 20150121
  Receipt Date: 20150121
  Transmission Date: 20150721
  Serious: Yes (Hospitalization)
  Sender: FDA-Public Use
  Company Number: FR2015GSK002327

PATIENT
  Age: 68 Year
  Sex: Female

DRUGS (3)
  1. DEROXAT (PAROXETINE HYDROCHLORIDE) UNKNOWN (LOT # UNKNOWN) [Suspect]
     Active Substance: PAROXETINE HYDROCHLORIDE
     Route: 048
     Dates: start: 20141118, end: 20141127
  2. SPIRONOLACTONE (SPIRONOLACTONE) UNKNOWN [Suspect]
     Active Substance: SPIRONOLACTONE
     Route: 048
     Dates: end: 20141201
  3. LANSOPRAZOLE (LANSOPRAZOLE) UNKNOWN [Suspect]
     Active Substance: LANSOPRAZOLE
     Route: 048
     Dates: end: 20141127

REACTIONS (4)
  - Apraxia [None]
  - Ataxia [None]
  - Hyponatraemia [None]
  - Hypokalaemia [None]

NARRATIVE: CASE EVENT DATE: 201411
